FAERS Safety Report 17032066 (Version 1)
Quarter: 2019Q4

REPORT INFORMATION
  Report Type: Spontaneous
  Country: CZ (occurrence: CZ)
  Receive Date: 20191114
  Receipt Date: 20191114
  Transmission Date: 20200122
  Serious: Yes (Other)
  Sender: FDA-Public Use
  Company Number: CZ-MYLANLABS-2019M1109004

PATIENT
  Sex: Male

DRUGS (3)
  1. CARBOPLATIN. [Suspect]
     Active Substance: CARBOPLATIN
     Indication: LUNG CARCINOMA CELL TYPE UNSPECIFIED STAGE IV
     Dosage: UNK (4 CYCLES OF CHEMOTHERAPY)
     Route: 065
  2. BEVACIZUMAB. [Suspect]
     Active Substance: BEVACIZUMAB
     Indication: LUNG CARCINOMA CELL TYPE UNSPECIFIED STAGE IV
     Dosage: UNK (10 CYCLES)
     Route: 065
     Dates: end: 201709
  3. PACLITAXEL. [Suspect]
     Active Substance: PACLITAXEL
     Indication: LUNG CARCINOMA CELL TYPE UNSPECIFIED STAGE IV
     Dosage: UNK (4 CYCLES OF CHEMOTHERAPY)
     Route: 065

REACTIONS (5)
  - Metastases to central nervous system [Recovering/Resolving]
  - Malignant neoplasm progression [Unknown]
  - Headache [Recovered/Resolved]
  - Metastases to bone [Recovering/Resolving]
  - Arthralgia [Recovered/Resolved]
